FAERS Safety Report 4376562-X (Version None)
Quarter: 2004Q2

REPORT INFORMATION
  Report Type: 
  Country: None (occurrence: None)
  Receive Date: 20040610
  Receipt Date: 20040607
  Transmission Date: 20050107
  Serious: Yes (Other)
  Sender: FDA-Public Use
  Company Number: 8147

PATIENT
  Age: 70 Year
  Sex: Female
  Weight: 48 kg

DRUGS (6)
  1. PAMIDRONATE DISODIUM [Suspect]
     Indication: OSTEOPOROSIS
     Dosage: 30 MG IV
     Route: 042
     Dates: start: 20040312, end: 20040312
  2. RELIFEX [Concomitant]
  3. PREDNISOLONE [Concomitant]
  4. DIHYDROCODEINE [Concomitant]
  5. ASPIRIN [Concomitant]
  6. ATENOLOL [Concomitant]

REACTIONS (3)
  - IMMOBILE [None]
  - MALAISE [None]
  - MUSCULOSKELETAL PAIN [None]
